FAERS Safety Report 9423867 (Version 1)
Quarter: 2013Q3

REPORT INFORMATION
  Report Type: Spontaneous
  Country: US (occurrence: US)
  Receive Date: 20130729
  Receipt Date: 20130729
  Transmission Date: 20140515
  Serious: Yes (Other)
  Sender: FDA-Public Use
  Company Number: US-AMGEN-USASP2013051260

PATIENT
  Age: 77 Year
  Sex: Female

DRUGS (2)
  1. PROLIA [Suspect]
     Indication: OSTEOPOROSIS
     Dosage: UNK
  2. BOTOX [Concomitant]
     Indication: NEUROGENIC BLADDER
     Dosage: UNK UNK, Q6MO

REACTIONS (19)
  - Dysstasia [Unknown]
  - Depression [Unknown]
  - Activities of daily living impaired [Unknown]
  - Cystitis [Unknown]
  - Bone disorder [Unknown]
  - Gait disturbance [Recovering/Resolving]
  - Laryngitis [Unknown]
  - Balance disorder [Unknown]
  - Skin exfoliation [Not Recovered/Not Resolved]
  - Bladder disorder [Unknown]
  - Skin induration [Unknown]
  - Arthralgia [Unknown]
  - Inappropriate schedule of drug administration [Unknown]
  - Pain [Recovered/Resolved]
  - Sensory loss [Unknown]
  - Bone pain [Not Recovered/Not Resolved]
  - Abdominal pain upper [Recovered/Resolved]
  - Musculoskeletal discomfort [Unknown]
  - Neuropathy peripheral [Not Recovered/Not Resolved]
